FAERS Safety Report 7589462-9 (Version None)
Quarter: 2011Q3

REPORT INFORMATION
  Report Type: 
  Country: None (occurrence: None)
  Receive Date: 20110705
  Receipt Date: 20110622
  Transmission Date: 20111222
  Serious: Yes (Other)
  Sender: FDA-Public Use
  Company Number: DE-JNJFOC-20110600659

PATIENT
  Sex: Female
  Weight: 60 kg

DRUGS (6)
  1. AMLODIPINE [Concomitant]
     Indication: HYPERTENSION
  2. RAMIPRIL [Concomitant]
     Indication: HYPERTENSION
  3. PALEXIA RETARD UK [Suspect]
     Indication: ARTHRALGIA
     Route: 065
     Dates: start: 20101130, end: 20101208
  4. ANTIDEPRESSANTS [Concomitant]
  5. PALEXIA RETARD UK [Suspect]
     Indication: BACK PAIN
     Route: 065
     Dates: start: 20101130, end: 20101208
  6. LAXATIVES [Concomitant]

REACTIONS (2)
  - HYPERTENSIVE CRISIS [None]
  - NIGHTMARE [None]
